FAERS Safety Report 7656161-4 (Version None)
Quarter: 2011Q3

REPORT INFORMATION
  Report Type: 
  Country: None (occurrence: None)
  Receive Date: 20110804
  Receipt Date: 20110728
  Transmission Date: 20111222
  Serious: Yes (Other)
  Sender: FDA-Public Use
  Company Number: US-PFIZER INC-2011172776

PATIENT
  Sex: Male
  Weight: 72.562 kg

DRUGS (5)
  1. SYNTHROID [Concomitant]
     Indication: HYPOTHYROIDISM
     Dosage: UNK
  2. XALATAN [Suspect]
     Dosage: ONE DROP IN BOTH EYES ONCE A DAY
     Route: 047
  3. ALPHAGAN [Concomitant]
     Dosage: ONE DROP IN EACH EYE THREE TIMES A DAY
     Route: 047
  4. XALATAN [Suspect]
     Indication: GLAUCOMA
     Dosage: ONE EYE DROP IN LEFT EYE ONCE A DAY
     Route: 047
  5. DORZOLAMIDE [Concomitant]
     Dosage: ONE DROP IN EACH EYE TWO TIMES A DAY
     Route: 047

REACTIONS (2)
  - CARDIAC DISORDER [None]
  - INTRAOCULAR PRESSURE TEST ABNORMAL [None]
